FAERS Safety Report 7948381-6 (Version None)
Quarter: 2011Q4

REPORT INFORMATION
  Report Type: 
  Country: None (occurrence: None)
  Receive Date: 20111130
  Receipt Date: 20111121
  Transmission Date: 20120403
  Serious: Yes (Other)
  Sender: FDA-Public Use
  Company Number: US-BAYER-201023947NA

PATIENT
  Age: 34 Year
  Sex: Female
  Weight: 63 kg

DRUGS (9)
  1. SULFA-TYPE MEDICATION [Concomitant]
     Indication: SKIN DISORDER
     Route: 061
  2. IBUPROFEN [Concomitant]
  3. YAZ [Suspect]
     Indication: CONTRACEPTION
     Dosage: UNK
     Route: 048
     Dates: start: 20060901, end: 20090501
  4. MULTI-VITAMIN [Concomitant]
  5. FOLIC ACID [Concomitant]
  6. VITAMIN B COMPLEX CAP [Concomitant]
  7. ACETAMINOPHEN [Concomitant]
     Dosage: UNK UNK, PRN
  8. PRILOSEC [Concomitant]
     Indication: ABDOMINAL PAIN
  9. VITAMIN D [Concomitant]

REACTIONS (8)
  - IRRITABLE BOWEL SYNDROME [None]
  - DYSPEPSIA [None]
  - PANCREATITIS [None]
  - CHOLELITHIASIS [None]
  - CHOLECYSTITIS CHRONIC [None]
  - ABDOMINAL PAIN [None]
  - ANORECTAL DISORDER [None]
  - ABDOMINAL PAIN UPPER [None]
